FAERS Safety Report 8114100-6 (Version None)
Quarter: 2012Q1

REPORT INFORMATION
  Report Type: 
  Country: None (occurrence: None)
  Receive Date: 20120203
  Receipt Date: 20120125
  Transmission Date: 20120608
  Serious: Yes (Hospitalization)
  Sender: FDA-Public Use
  Company Number: BR-ASTRAZENECA-2012SE05797

PATIENT
  Age: 66 Year
  Sex: Male
  Weight: 93 kg

DRUGS (5)
  1. ATLANSIL [Concomitant]
     Indication: ARRHYTHMIA
  2. CRESTOR [Suspect]
     Indication: BLOOD CHOLESTEROL INCREASED
     Route: 048
  3. BRILINTA [Suspect]
     Indication: ARTERIAL OCCLUSIVE DISEASE
     Route: 048
     Dates: start: 20120125
  4. ATACAND HCT [Suspect]
     Indication: HYPERTENSION
     Dosage: 16/12.5 MG DAILY
     Route: 048
  5. ICTUS [Concomitant]
     Indication: CARDIAC FAILURE CONGESTIVE
     Route: 048

REACTIONS (4)
  - TACHYCARDIA [None]
  - OFF LABEL USE [None]
  - DYSPNOEA [None]
  - ARTERIAL OCCLUSIVE DISEASE [None]
